FAERS Safety Report 14984597 (Version 1)
Quarter: 2018Q2

REPORT INFORMATION
  Report Type: Spontaneous
  Country: US (occurrence: US)
  Receive Date: 20180607
  Receipt Date: 20180607
  Transmission Date: 20180711
  Serious: Yes (Hospitalization)
  Sender: FDA-Public Use
  Company Number: US-MYLANLABS-2018M1037392

PATIENT
  Sex: Female
  Weight: 2.65 kg

DRUGS (4)
  1. DIGOXIN. [Concomitant]
     Active Substance: DIGOXIN
     Indication: JUNCTIONAL ECTOPIC TACHYCARDIA
     Dosage: UNK
     Route: 064
  2. AMIODARONE [Suspect]
     Active Substance: AMIODARONE
     Dosage: 300 MG
     Route: 064
  3. SOTALOL. [Suspect]
     Active Substance: SOTALOL
     Indication: JUNCTIONAL ECTOPIC TACHYCARDIA
     Dosage: 480 MG, QD, INITIAL DOSE NOT STATED; MAXIMUM DOSE WAS 480MG/DAY
     Route: 064
  4. AMIODARONE [Suspect]
     Active Substance: AMIODARONE
     Indication: JUNCTIONAL ECTOPIC TACHYCARDIA
     Dosage: 600 MG, Q8H, FOLLOWED BY 300MG DOSE
     Route: 064

REACTIONS (2)
  - Bundle branch block left [Recovered/Resolved]
  - Foetal exposure during pregnancy [Recovered/Resolved]
